FAERS Safety Report 22064391 (Version 1)
Quarter: 2023Q1

REPORT INFORMATION
  Report Type: Spontaneous
  Country: US (occurrence: US)
  Receive Date: 20230306
  Receipt Date: 20230306
  Transmission Date: 20230417
  Serious: Yes (Life-Threatening, Hospitalization, Other)
  Sender: FDA-Public Use
  Company Number: US-drreddys-SPO/USA/23/0161771

PATIENT
  Age: 9 Decade
  Sex: Male

DRUGS (8)
  1. DEXAMETHASONE [Suspect]
     Active Substance: DEXAMETHASONE
     Indication: COVID-19 pneumonia
     Route: 042
  2. PROPOFOL [Suspect]
     Active Substance: PROPOFOL
     Indication: Sedative therapy
  3. PROPOFOL [Suspect]
     Active Substance: PROPOFOL
  4. NOREPINEPHRINE [Concomitant]
     Active Substance: NOREPINEPHRINE
     Indication: Vasopressive therapy
  5. AZITHROMYCIN [Concomitant]
     Active Substance: AZITHROMYCIN
     Indication: COVID-19 pneumonia
     Route: 048
  6. OXYGEN [Concomitant]
     Active Substance: OXYGEN
     Indication: Acute respiratory failure
     Dosage: CANNULA
     Route: 045
  7. OXYGEN [Concomitant]
     Active Substance: OXYGEN
     Dosage: HIGH FLOW
     Route: 045
  8. CEFTRIAXONE [Concomitant]
     Active Substance: CEFTRIAXONE
     Indication: COVID-19 pneumonia
     Route: 042

REACTIONS (2)
  - Propofol infusion syndrome [Recovering/Resolving]
  - Product use in unapproved indication [Unknown]
